FAERS Safety Report 7556477-6 (Version None)
Quarter: 2011Q2

REPORT INFORMATION
  Report Type: 
  Country: None (occurrence: None)
  Receive Date: 20110615
  Receipt Date: 20110615
  Transmission Date: 20111010
  Serious: Yes (Other)
  Sender: FDA-Public Use
  Company Number: None

PATIENT
  Age: 67 Year
  Sex: Female
  Weight: 63.5036 kg

DRUGS (2)
  1. AVELOX [Suspect]
     Indication: PNEUMONIA
     Dosage: 1 TABLET; 400 MG 1 A DAY PO
     Route: 048
     Dates: start: 20101023, end: 20101025
  2. AVELOX [Suspect]
     Indication: INFLUENZA
     Dosage: 1 TABLET; 400 MG 1 A DAY PO
     Route: 048
     Dates: start: 20101023, end: 20101025

REACTIONS (9)
  - INSOMNIA [None]
  - ARTHRALGIA [None]
  - DECREASED APPETITE [None]
  - NERVOUSNESS [None]
  - JOINT CREPITATION [None]
  - HEART RATE INCREASED [None]
  - PARAESTHESIA [None]
  - FLUSHING [None]
  - SKIN DISORDER [None]
